FAERS Safety Report 18584600 (Version 1)
Quarter: 2020Q4

REPORT INFORMATION
  Report Type: Spontaneous
  Country: NL (occurrence: NL)
  Receive Date: 20201207
  Receipt Date: 20201207
  Transmission Date: 20210114
  Serious: Yes (Other)
  Sender: FDA-Public Use
  Company Number: NL-LEADINGPHARMA-NL-2020LEALIT00019

PATIENT

DRUGS (1)
  1. FUROSEMIDE TABLETS USP [Suspect]
     Active Substance: FUROSEMIDE
     Indication: DIURETIC THERAPY
     Route: 065

REACTIONS (4)
  - Oedema [Unknown]
  - Therapy change [Unknown]
  - Dyspnoea [Unknown]
  - Cardiac failure congestive [Unknown]
